FAERS Safety Report 7824940-6 (Version None)
Quarter: 2011Q4

REPORT INFORMATION
  Report Type: 
  Country: None (occurrence: None)
  Receive Date: 20111019
  Receipt Date: 20110303
  Transmission Date: 20120403
  Serious: No
  Sender: FDA-Public Use
  Company Number: US-BRISTOL-MYERS SQUIBB COMPANY-15587264

PATIENT
  Age: 55 Year
  Sex: Male

DRUGS (1)
  1. AVALIDE [Suspect]
     Dosage: 1DF=300/12.5 UNIT NOT GIVEN. DURATION: FOR YEARS

REACTIONS (1)
  - MUSCLE SPASMS [None]
